FAERS Safety Report 6602408-2 (Version None)
Quarter: 2010Q1

REPORT INFORMATION
  Report Type: 
  Country: None (occurrence: None)
  Receive Date: 20100225
  Receipt Date: 20100217
  Transmission Date: 20100710
  Serious: Yes (Hospitalization)
  Sender: FDA-Public Use
  Company Number: B0635993A

PATIENT
  Sex: Female

DRUGS (3)
  1. AUGMENTIN [Suspect]
     Indication: DRUG USE FOR UNKNOWN INDICATION
     Dosage: 1UNIT PER DAY
     Route: 048
     Dates: start: 20091218, end: 20091219
  2. TRIMETON [Concomitant]
  3. URBASON [Concomitant]

REACTIONS (4)
  - DRUG ADMINISTRATION ERROR [None]
  - DYSPNOEA [None]
  - ERYTHEMA [None]
  - PRURITUS [None]
